FAERS Safety Report 13644961 (Version 1)
Quarter: 2017Q2

REPORT INFORMATION
  Report Type: Spontaneous
  Country: US (occurrence: US)
  Receive Date: 20170612
  Receipt Date: 20170612
  Transmission Date: 20170830
  Serious: No
  Sender: FDA-Public Use
  Company Number: US-ROCHE-632343

PATIENT
  Sex: Female

DRUGS (2)
  1. XELODA [Suspect]
     Active Substance: CAPECITABINE
     Indication: BREAST CANCER METASTATIC
     Route: 065
  2. IXEMPRA [Concomitant]
     Active Substance: IXABEPILONE
     Route: 065

REACTIONS (2)
  - Nail discolouration [Unknown]
  - Onycholysis [Unknown]
